FAERS Safety Report 4972250-7 (Version None)
Quarter: 2006Q2

REPORT INFORMATION
  Report Type: 
  Country: None (occurrence: None)
  Receive Date: 20060413
  Receipt Date: 20060405
  Transmission Date: 20061013
  Serious: Yes (Hospitalization)
  Sender: FDA-Public Use
  Company Number: PHBS2006US05130

PATIENT
  Age: 28 Year
  Sex: Female

DRUGS (3)
  1. ZOLEDRONIC ACID [Suspect]
     Indication: BREAST CANCER METASTATIC
     Route: 042
     Dates: start: 20010101
  2. ANTINEOPLASTIC AGENTS [Concomitant]
  3. HERCEPTIN [Concomitant]

REACTIONS (5)
  - BONE GRAFT [None]
  - FOOT FRACTURE [None]
  - IMPAIRED HEALING [None]
  - INTERNAL FIXATION OF FRACTURE [None]
  - LIMB INJURY [None]
